FAERS Safety Report 14505606 (Version 1)
Quarter: 2018Q1

REPORT INFORMATION
  Report Type: Spontaneous
  Country: US (occurrence: US)
  Receive Date: 20180207
  Receipt Date: 20180207
  Transmission Date: 20180509
  Serious: Yes (Other)
  Sender: FDA-Public Use
  Company Number: None

PATIENT
  Sex: Female
  Weight: 53.55 kg

DRUGS (9)
  1. BABY ASPIRIN [Concomitant]
     Active Substance: ASPIRIN
  2. DIPHEHYDRAMINE TABLETS [Suspect]
     Active Substance: DIPHENHYDRAMINE
     Indication: COUGH
     Dosage: ?          QUANTITY:1 TABLET(S);?
     Route: 048
     Dates: start: 20180206
  3. GLUCOSAMIME [Concomitant]
  4. TURMERIC [Concomitant]
     Active Substance: HERBALS\TURMERIC
  5. PROBIOTICS [Concomitant]
     Active Substance: PROBIOTICS NOS
  6. ZINC. [Concomitant]
     Active Substance: ZINC
  7. BENSONATATE 100 MG CAPSULES [Suspect]
     Active Substance: BENZONATATE
     Indication: COUGH
     Dosage: ?          QUANTITY:90 CAPSULE(S);?
     Route: 048
     Dates: start: 20180206
  8. VITAMIN D [Concomitant]
     Active Substance: CHOLECALCIFEROL
  9. B6 [Concomitant]
     Active Substance: PYRIDOXINE HYDROCHLORIDE

REACTIONS (4)
  - Heart rate increased [None]
  - Headache [None]
  - Dehydration [None]
  - Blood pressure increased [None]

NARRATIVE: CASE EVENT DATE: 20180206
